FAERS Safety Report 9083331 (Version 1)
Quarter: 2013Q1

REPORT INFORMATION
  Report Type: Report from Study
  Country: US (occurrence: US)
  Receive Date: 20130129
  Receipt Date: 20130129
  Transmission Date: 20140127
  Serious: No
  Sender: FDA-Public Use
  Company Number: US-ABBOTT-12P-163-0948260-00

PATIENT
  Age: 67 Year
  Sex: Female

DRUGS (5)
  1. HUMIRA 40 MG/0.8 ML PEN [Suspect]
     Indication: RHEUMATOID ARTHRITIS
     Dates: start: 20110729
  2. DIOVAN [Concomitant]
     Indication: HYPERTENSION
     Dosage: 160MG DAILY
  3. VERELAN PM [Concomitant]
     Indication: HYPERTENSION
     Dosage: 20MG DAILY
  4. LEFLUNOMIDE [Concomitant]
     Indication: RHEUMATOID ARTHRITIS
     Dosage: 20MG DAILY
  5. MELOXICAM [Concomitant]
     Indication: RHEUMATOID ARTHRITIS
     Dosage: 15MG DAILY

REACTIONS (4)
  - Device malfunction [Recovered/Resolved]
  - Injection site erythema [None]
  - Incorrect dose administered [Recovered/Resolved]
  - Injection site pain [Unknown]
